FAERS Safety Report 5534440-4 (Version None)
Quarter: 2007Q4

REPORT INFORMATION
  Report Type: 
  Country: None (occurrence: None)
  Receive Date: 20071205
  Receipt Date: 20071127
  Transmission Date: 20080405
  Serious: Yes (Hospitalization)
  Sender: FDA-Public Use
  Company Number: A0697349A

PATIENT
  Age: 69 Year
  Sex: Female

DRUGS (2)
  1. AROPAX [Suspect]
     Indication: DEPRESSION
     Dates: start: 20070701, end: 20071001
  2. UNSPECIFIED MEDICATION [Concomitant]

REACTIONS (2)
  - PERFORATED ULCER [None]
  - ULCER [None]
